FAERS Safety Report 5363104-5 (Version None)
Quarter: 2007Q2

REPORT INFORMATION
  Report Type: 
  Country: None (occurrence: None)
  Receive Date: 20070615
  Receipt Date: 20070604
  Transmission Date: 20071010
  Serious: Yes (Death, Other)
  Sender: FDA-Public Use
  Company Number: 2007-01750

PATIENT
  Age: 62 Year
  Sex: Male

DRUGS (1)
  1. VELCADE [Suspect]
     Indication: MANTLE CELL LYMPHOMA

REACTIONS (6)
  - BLINDNESS UNILATERAL [None]
  - DISEASE RECURRENCE [None]
  - DRUG INEFFECTIVE [None]
  - MALIGNANT NEOPLASM PROGRESSION [None]
  - MANTLE CELL LYMPHOMA REFRACTORY [None]
  - OPTIC NERVE DISORDER [None]
